FAERS Safety Report 5997652-1 (Version None)
Quarter: 2008Q4

REPORT INFORMATION
  Report Type: 
  Country: None (occurrence: None)
  Receive Date: 20081212
  Receipt Date: 20081118
  Transmission Date: 20090506
  Serious: No
  Sender: FDA-Public Use
  Company Number: US-ABBOTT-08P-163-0488630-00

PATIENT
  Sex: Female
  Weight: 65.83 kg

DRUGS (10)
  1. HUMIRA [Suspect]
     Indication: COLITIS ULCERATIVE
     Route: 058
     Dates: start: 20081003
  2. MIRTAZAPINE [Concomitant]
     Indication: ANXIETY
     Route: 048
  3. SINGULAIR [Concomitant]
     Indication: ASTHMA
     Route: 048
  4. FOLIC ACID [Concomitant]
     Indication: VITAMIN SUPPLEMENTATION
     Route: 048
  5. MESALAMINE [Concomitant]
     Indication: COLITIS ULCERATIVE
     Dosage: 4 CAPSULES IN THE AM, 4 CAPSULES IN THE PM
     Route: 048
  6. RABEPRAZOLE SODIUM [Concomitant]
     Indication: DRUG USE FOR UNKNOWN INDICATION
     Route: 048
  7. BENICAR HCT [Concomitant]
     Indication: DRUG USE FOR UNKNOWN INDICATION
     Dosage: 20/12.5 MG
     Route: 048
  8. FLAGYL [Concomitant]
     Indication: CROHN'S DISEASE
     Route: 048
  9. LOMOTIL [Concomitant]
     Indication: CROHN'S DISEASE
     Dosage: 2 TO 8 PILLS A DAY PRN QD
     Route: 048
  10. LACTOBACILLUS ACIDOPHILUS [Concomitant]
     Indication: DRUG USE FOR UNKNOWN INDICATION

REACTIONS (1)
  - HYPOAESTHESIA [None]
